FAERS Safety Report 11472272 (Version 1)
Quarter: 2015Q3

REPORT INFORMATION
  Report Type: Spontaneous
  Country: US (occurrence: US)
  Receive Date: 20150908
  Receipt Date: 20150908
  Transmission Date: 20151125
  Serious: No
  Sender: FDA-Public Use
  Company Number: US-SA-2015SA091299

PATIENT
  Age: 74 Year
  Sex: Female

DRUGS (6)
  1. TOUJEO [Suspect]
     Active Substance: INSULIN GLARGINE
     Indication: TYPE 2 DIABETES MELLITUS
     Dosage: DOSE:36 UNIT(S)
     Route: 065
     Dates: start: 201506
  2. TOUJEO [Suspect]
     Active Substance: INSULIN GLARGINE
     Indication: TYPE 2 DIABETES MELLITUS
     Dosage: DOSE:30 UNIT(S)
     Route: 065
     Dates: start: 201506, end: 201506
  3. SOLOSTAR [Concomitant]
     Active Substance: DEVICE
     Indication: TYPE 2 DIABETES MELLITUS
     Dates: start: 201506
  4. TOUJEO [Suspect]
     Active Substance: INSULIN GLARGINE
     Indication: TYPE 2 DIABETES MELLITUS
     Dosage: DOSE:32 UNIT(S)
     Route: 065
     Dates: start: 201506, end: 201506
  5. SOLOSTAR [Concomitant]
     Active Substance: DEVICE
     Indication: TYPE 2 DIABETES MELLITUS
     Dates: start: 201506, end: 201506
  6. SOLOSTAR [Concomitant]
     Active Substance: DEVICE
     Indication: TYPE 2 DIABETES MELLITUS
     Dates: start: 201506, end: 201506

REACTIONS (3)
  - Malaise [Recovering/Resolving]
  - Blood glucose increased [Recovering/Resolving]
  - Drug administration error [Unknown]

NARRATIVE: CASE EVENT DATE: 201506
